FAERS Safety Report 7916512-X (Version None)
Quarter: 2011Q4

REPORT INFORMATION
  Report Type: 
  Country: None (occurrence: None)
  Receive Date: 20111116
  Receipt Date: 20110503
  Transmission Date: 20120403
  Serious: No
  Sender: FDA-Public Use
  Company Number: US-BAYER-2011-037937

PATIENT
  Age: 54 Year
  Sex: Female

DRUGS (2)
  1. CLIMARA PRO [Suspect]
     Indication: HOT FLUSH
     Dosage: 0.045 MG/24HR, UNK
     Route: 062
     Dates: start: 20100701
  2. CLIMARA PRO [Suspect]
     Dosage: 0.045 MG/24HR, UNK
     Dates: start: 20110301

REACTIONS (5)
  - RASH PRURITIC [None]
  - ERYTHEMA [None]
  - INCORRECT DRUG ADMINISTRATION DURATION [None]
  - APPLICATION SITE RASH [None]
  - PRODUCT DEPOSIT [None]
